FAERS Safety Report 4962306-7 (Version None)
Quarter: 2006Q2

REPORT INFORMATION
  Report Type: 
  Country: None (occurrence: None)
  Receive Date: 20060404
  Receipt Date: 20060221
  Transmission Date: 20061013
  Serious: No
  Sender: FDA-Public Use
  Company Number: US-BRISTOL-MYERS SQUIBB COMPANY-13293550

PATIENT
  Age: 92 Year
  Sex: Female

DRUGS (2)
  1. HYDROXYUREA [Suspect]
     Indication: POLYCYTHAEMIA VERA
  2. PLAVIX [Suspect]
     Indication: PERIPHERAL VASCULAR DISORDER

REACTIONS (1)
  - PLATELET COUNT INCREASED [None]
